FAERS Safety Report 14636576 (Version 1)
Quarter: 2018Q1

REPORT INFORMATION
  Report Type: Spontaneous
  Country: CH (occurrence: CH)
  Receive Date: 20180314
  Receipt Date: 20180314
  Transmission Date: 20180509
  Serious: Yes (Hospitalization)
  Sender: FDA-Public Use
  Company Number: CH-ASTRAZENECA-2018SE28832

PATIENT
  Age: 23078 Day
  Sex: Female

DRUGS (9)
  1. COVERAM PLUS [Concomitant]
     Active Substance: AMLODIPINE BESYLATE\INDAPAMIDE\PERINDOPRIL ARGININE
     Dates: start: 201611, end: 20180112
  2. SYMFONA [Concomitant]
     Active Substance: GINKGO
     Dates: start: 201611, end: 20180112
  3. BRINZOLAMIDE [Concomitant]
     Active Substance: BRINZOLAMIDE
     Dates: start: 20180112
  4. GANFORT [Concomitant]
     Active Substance: BIMATOPROST\TIMOLOL
     Dates: start: 20180112
  5. PARACETAMOL [Concomitant]
     Active Substance: ACETAMINOPHEN
     Dates: start: 20180112
  6. CRESTOR [Suspect]
     Active Substance: ROSUVASTATIN CALCIUM
     Indication: HYPERCHOLESTEROLAEMIA
     Route: 048
     Dates: start: 201710, end: 20180112
  7. XIGDUO XR [Suspect]
     Active Substance: DAPAGLIFLOZIN PROPANEDIOL\METFORMIN HYDROCHLORIDE
     Indication: DIABETES MELLITUS
     Route: 048
     Dates: start: 201711, end: 20180115
  8. LYCOPODIUM CLAVATUM [Concomitant]
     Active Substance: HOMEOPATHICS
     Dates: start: 20180122, end: 20180122
  9. VALDOXAN [Suspect]
     Active Substance: AGOMELATINE
     Indication: DEPRESSION
     Route: 048
     Dates: start: 201710, end: 20180112

REACTIONS (1)
  - Cholestatic liver injury [Not Recovered/Not Resolved]

NARRATIVE: CASE EVENT DATE: 20180111
